FAERS Safety Report 8999086 (Version 2)
Quarter: 2013Q1

REPORT INFORMATION
  Report Type: Spontaneous
  Country: US (occurrence: US)
  Receive Date: 20130103
  Receipt Date: 20130219
  Transmission Date: 20140127
  Serious: Yes (Other)
  Sender: FDA-Public Use
  Company Number: US-VERTEX PHARMACEUTICALS INC.-AE-2011-000707

PATIENT
  Age: 70 None
  Sex: Male

DRUGS (26)
  1. INCIVEK [Suspect]
     Indication: HEPATITIS C
     Dosage: 750 MG, TID
     Route: 048
     Dates: start: 20110709, end: 20110926
  2. INCIVEK [Suspect]
     Dosage: 750 MG, BID
     Route: 048
     Dates: start: 20110927, end: 20110927
  3. INCIVEK [Suspect]
     Dosage: 750 MG, TID
     Route: 048
     Dates: start: 20110928, end: 20110928
  4. INTRON [Suspect]
     Indication: HEPATITIS C
     Dosage: 180 ?G, QW
     Dates: start: 20110709, end: 20110810
  5. INTRON [Suspect]
     Dosage: 135 ?G, QW
     Dates: start: 20110813, end: 20110817
  6. INTRON [Suspect]
     Dosage: 90 ?G, QW
     Dates: start: 20110820, end: 20110826
  7. INTRON [Suspect]
     Dosage: 135 ?G, QW
     Dates: start: 20110827, end: 20111121
  8. INTRON [Suspect]
     Dosage: 112.5 ?G, QW
     Dates: start: 20111126, end: 20111201
  9. INTRON [Suspect]
     Dosage: 135 ?G, QW
     Dates: start: 20111203, end: 20111222
  10. RIBAVIRIN [Suspect]
     Indication: HEPATITIS C
     Dosage: 1000 MG, QD
     Dates: start: 20110709, end: 20110803
  11. RIBAVIRIN [Suspect]
     Dosage: 800 MG, QD
     Dates: start: 20110804, end: 20110827
  12. RIBAVIRIN [Suspect]
     Dosage: 600 MG, QD
     Dates: start: 20110831, end: 20110903
  13. RIBAVIRIN [Suspect]
     Dosage: 400 MG, QD
     Dates: start: 20110906, end: 20110928
  14. RIBAVIRIN [Suspect]
     Dosage: 600 MG, QD
     Dates: start: 20111001, end: 20111008
  15. RIBAVIRIN [Suspect]
     Dosage: 200 MG, QD
     Dates: start: 20111010, end: 20111011
  16. RIBAVIRIN [Suspect]
     Dosage: 400 MG, QD
     Dates: start: 20111019
  17. RIBAVIRIN [Suspect]
     Dosage: 600 MG, QD
     Dates: start: 20111021, end: 20111026
  18. RIBAVIRIN [Suspect]
     Dosage: 800 MG, QD
     Dates: start: 20111028, end: 20111112
  19. RIBAVIRIN [Suspect]
     Dosage: 400 MG, QD
     Dates: start: 20111114
  20. RIBAVIRIN [Suspect]
     Dosage: 800 MG, QD
     Dates: start: 20111115, end: 20111116
  21. RIBAVIRIN [Suspect]
     Dosage: 400 MG, QD
     Dates: start: 20111117, end: 20111121
  22. RIBAVIRIN [Suspect]
     Dosage: 200 MG, QD
     Dates: start: 20111130
  23. RIBAVIRIN [Suspect]
     Dosage: 400 MG, QD
     Dates: start: 20111201, end: 20111205
  24. RIBAVIRIN [Suspect]
     Dosage: 600 MG, QD
     Dates: start: 20111206, end: 20111212
  25. RIBAVIRIN [Suspect]
     Dosage: 800 MG, QD
     Dates: start: 20111213, end: 20111222
  26. PREDNISONE [Concomitant]
     Dosage: UNK
     Dates: end: 1990

REACTIONS (14)
  - Anaemia [Unknown]
  - Drug dose omission [Recovered/Resolved]
  - Deafness [Recovered/Resolved]
  - Dyspnoea [Unknown]
  - Visual impairment [Recovered/Resolved]
  - Visual acuity reduced [Unknown]
  - Psoriasis [Unknown]
  - Chills [Unknown]
  - Therapeutic response unexpected [Recovered/Resolved]
  - Retinal haemorrhage [Recovered/Resolved]
  - Local swelling [Not Recovered/Not Resolved]
  - Fatigue [Unknown]
  - Drug ineffective [Unknown]
  - Anorectal discomfort [Unknown]
